FAERS Safety Report 18679474 (Version 4)
Quarter: 2021Q1

REPORT INFORMATION
  Report Type: Spontaneous
  Country: GB (occurrence: GB)
  Receive Date: 20201230
  Receipt Date: 20210210
  Transmission Date: 20210419
  Serious: Yes (Other)
  Sender: FDA-Public Use
  Company Number: GB-AUROBINDO-AUR-APL-2020-063230

PATIENT
  Age: 77 Year
  Sex: Male
  Weight: 81 kg

DRUGS (4)
  1. CO?AMOXICLAV 500 MG /125 MG FILM?COATED TABLETS [Suspect]
     Active Substance: AMOXICILLIN\CLAVULANIC ACID
     Indication: ANTIBIOTIC PROPHYLAXIS
     Dosage: 500 MILLIGRAM (500 MG HALVED TDS (TOTAL DAILY DOSE: 1500MG/375MG))
     Route: 048
     Dates: start: 202012
  2. CO?AMOXICLAV 500 MG /125 MG FILM?COATED TABLETS [Suspect]
     Active Substance: AMOXICILLIN\CLAVULANIC ACID
     Dosage: 1 DOSAGE FORM, 3 TIMES A DAY
     Route: 048
     Dates: start: 20201218
  3. THYROXINE [Concomitant]
     Active Substance: LEVOTHYROXINE
     Indication: THYROID DISORDER
  4. THYROXINE [Concomitant]
     Active Substance: LEVOTHYROXINE
     Indication: THYROID DISORDER
     Dosage: 175 MICROGRAM
     Route: 048

REACTIONS (2)
  - Foreign body in throat [Recovered/Resolved]
  - Off label use [Unknown]

NARRATIVE: CASE EVENT DATE: 202012
